FAERS Safety Report 7998069 (Version 2)
Quarter: 2012Q4

REPORT INFORMATION
  Report Type: 
  Country: JP (occurrence: JP)
  Receive Date: 20110620
  Receipt Date: 20121204
  Transmission Date: 20130627
  Serious: Yes (Life-Threatening, Hospitalization)
  Sender: FDA-Public Use
  Company Number: JP-PFIZER INC-2011103810

PATIENT
  Age: 62 Year
  Sex: Male
  Weight: 50.7 kg

DRUGS (10)
  1. SUTENT [Suspect]
     Indication: METASTATIC RENAL CELL CARCINOMA
     Dosage: 25 mg, 1x/day
     Route: 048
     Dates: start: 20110415, end: 20110509
  2. PARIET [Concomitant]
     Indication: REFLUX ESOPHAGITIS
     Dosage: 10 mg, 1x/day
     Route: 048
     Dates: start: 201011, end: 20110508
  3. VALSARTAN [Concomitant]
     Indication: HYPERTENSION
     Dosage: 160 mg, 1x/day
     Route: 048
     Dates: start: 201011, end: 20110508
  4. CALCIUM CARBONATE [Concomitant]
     Indication: HYPERPHOSPHATEMIA
     Dosage: 1 g, 3x/day
     Route: 048
     Dates: start: 201011, end: 20110508
  5. CALCIUM POLYSTYRENE SULFONATE [Concomitant]
     Indication: HYPERKALEMIA
     Dosage: 25 g, 1x/day
     Route: 048
     Dates: start: 201011, end: 20110508
  6. SEVELAMER HYDROCHLORIDE [Concomitant]
     Indication: HYPERPHOSPHATEMIA
     Dosage: UNK
     Route: 048
     Dates: start: 201011, end: 20110508
  7. NORVASC [Concomitant]
     Indication: HYPERTENSION
     Dosage: 7.5 mg, 1x/day
     Route: 048
     Dates: start: 201011, end: 20110508
  8. NAIXAN [Concomitant]
     Indication: FEVER
     Dosage: 100 mg, 3x/day
     Route: 048
     Dates: start: 20110421, end: 20110508
  9. SUMIFERON [Concomitant]
     Indication: RENAL CELL CARCINOMA
     Dosage: 300 milion units/day, 3x/week
     Route: 058
     Dates: start: 20110212, end: 20110507
  10. EPOGIN [Concomitant]
     Indication: RENAL ANEMIA
     Dosage: 3000 units/day, 3x/week
     Route: 042
     Dates: start: 20110415

REACTIONS (2)
  - Altered state of consciousness [Recovered/Resolved]
  - Tonic convulsion [Recovered/Resolved]
